FAERS Safety Report 24634473 (Version 1)
Quarter: 2024Q4

REPORT INFORMATION
  Report Type: Spontaneous
  Country: CA (occurrence: CA)
  Receive Date: 20241119
  Receipt Date: 20241119
  Transmission Date: 20250115
  Serious: Yes (Other)
  Sender: CSL BEHRING
  Company Number: CA-BEH-2024185564

PATIENT
  Age: 79 Year
  Sex: Female
  Weight: 77 kg

DRUGS (8)
  1. ALBUREX [Suspect]
     Active Substance: ALBUMIN HUMAN
     Indication: Surgery
     Dosage: 5 ML (SOLUTION INTRAVENOUS)
     Route: 042
  2. DEXTROSE [Concomitant]
     Active Substance: DEXTROSE MONOHYDRATE
     Dosage: SOLUTION INTRAVENOUS
  3. PHENYLEPHRINE [Concomitant]
     Active Substance: PHENYLEPHRINE
     Dosage: INJECTION
  4. PIPERACILLIN SODIUM\TAZOBACTAM SODIUM [Concomitant]
     Active Substance: PIPERACILLIN SODIUM\TAZOBACTAM SODIUM
  5. PROPOFOL [Concomitant]
     Active Substance: PROPOFOL
  6. PROPRANOLOL HYDROCHLORIDE [Concomitant]
     Active Substance: PROPRANOLOL HYDROCHLORIDE
  7. ROCURONIUM [Concomitant]
     Active Substance: ROCURONIUM BROMIDE
  8. TYLENOL [Concomitant]
     Active Substance: ACETAMINOPHEN

REACTIONS (15)
  - Allergic transfusion reaction [Recovered/Resolved]
  - Atelectasis [Recovered/Resolved]
  - Blood pressure decreased [Recovered/Resolved]
  - Candida test positive [Recovered/Resolved]
  - Fungal test positive [Recovered/Resolved]
  - Heart rate increased [Recovered/Resolved]
  - Hypotension [Recovered/Resolved]
  - Hypoxia [Recovered/Resolved]
  - Lung consolidation [Recovered/Resolved]
  - Oxygen saturation decreased [Recovered/Resolved]
  - Oxygen therapy [Recovered/Resolved]
  - Pleural effusion [Recovered/Resolved]
  - Pulmonary oedema [Recovered/Resolved]
  - Tachycardia [Recovered/Resolved]
  - Transfusion reaction [Recovered/Resolved]
